FAERS Safety Report 8768290 (Version 1)
Quarter: 2012Q4

REPORT INFORMATION
  Report Type: 
  Country: GB (occurrence: GB)
  Receive Date: 20120906
  Receipt Date: 20120906
  Transmission Date: 20130627
  Serious: Yes (Other)
  Sender: FDA-Public Use
  Company Number: GB-TEVA-356103ISR

PATIENT
  Age: 71 Year
  Sex: Female
  Weight: 57.15 kg

DRUGS (5)
  1. AMLODIPINE [Suspect]
  2. BENDROFLUMETHIAZIDE [Concomitant]
     Dates: start: 20120323
  3. LISINOPRIL [Concomitant]
     Dates: start: 20120323
  4. HYDROCORTISONE [Concomitant]
     Dates: start: 20120514, end: 20120611
  5. PROCHLORPERAZINE [Concomitant]
     Dates: start: 20120514

REACTIONS (1)
  - Breast pain [Recovering/Resolving]
